FAERS Safety Report 15742934 (Version 1)
Quarter: 2018Q4

REPORT INFORMATION
  Report Type: Spontaneous
  Country: DK (occurrence: DK)
  Receive Date: 20181220
  Receipt Date: 20181220
  Transmission Date: 20190205
  Serious: Yes (Death, Hospitalization)
  Sender: FDA-Public Use
  Company Number: DK-STRIDES ARCOLAB LIMITED-2018SP010624

PATIENT
  Age: 63 Year
  Sex: Female

DRUGS (3)
  1. ENALAPRIL [Interacting]
     Active Substance: ENALAPRIL
     Indication: PRODUCT USED FOR UNKNOWN INDICATION
     Dosage: UNK
     Route: 048
  2. AMLODIPINE [Suspect]
     Active Substance: AMLODIPINE BESYLATE
     Indication: PRODUCT USED FOR UNKNOWN INDICATION
     Dosage: 425 MG, UNKNOWN
     Route: 048
  3. METOPROLOL. [Interacting]
     Active Substance: METOPROLOL
     Indication: PRODUCT USED FOR UNKNOWN INDICATION
     Dosage: 4250 MG, UNKNOWN
     Route: 048

REACTIONS (8)
  - Nasopharyngitis [Unknown]
  - Cardiotoxicity [Fatal]
  - Intentional overdose [Fatal]
  - Toxicity to various agents [Fatal]
  - Anuria [Unknown]
  - Suicide attempt [Fatal]
  - Coma [Unknown]
  - Drug interaction [Unknown]
